FAERS Safety Report 6530218-3 (Version None)
Quarter: 2009Q4

REPORT INFORMATION
  Report Type: 
  Country: None (occurrence: None)
  Receive Date: 20091231
  Receipt Date: 20090311
  Transmission Date: 20100525
  Serious: Yes (Other)
  Sender: FDA-Public Use
  Company Number: US-SEPTODONT-200900069

PATIENT
  Age: 39 Year
  Sex: Female
  Weight: 67 kg

DRUGS (3)
  1. LIGNOSPAN STANDARD [Suspect]
     Indication: LOCAL ANAESTHESIA
     Dosage: DENTAL INJECTION; 1.7 ML CARATRIDGE
     Route: 004
     Dates: start: 20090303
  2. TOPE (BENZOCAINE) [Concomitant]
  3. LEVOTHYROX (LEVOTHYROXINE) [Concomitant]

REACTIONS (3)
  - CHEST PAIN [None]
  - PALPITATIONS [None]
  - TACHYCARDIA [None]
